FAERS Safety Report 7016217-6 (Version None)
Quarter: 2010Q3

REPORT INFORMATION
  Report Type: 
  Country: None (occurrence: None)
  Receive Date: 20100927
  Receipt Date: 20100617
  Transmission Date: 20110219
  Serious: No
  Sender: FDA-Public Use
  Company Number: US-ASTRAZENECA-2010SE28505

PATIENT
  Age: 541 Month
  Sex: Female

DRUGS (2)
  1. ARIMIDEX [Suspect]
     Indication: BREAST CANCER
     Route: 048
     Dates: start: 20100319
  2. ARIMIDEX [Suspect]
     Route: 048

REACTIONS (4)
  - DROOLING [None]
  - DRUG DOSE OMISSION [None]
  - MYASTHENIA GRAVIS [None]
  - VIITH NERVE PARALYSIS [None]
